FAERS Safety Report 4777438-6 (Version None)
Quarter: 2005Q3

REPORT INFORMATION
  Report Type: 
  Country: None (occurrence: None)
  Receive Date: 20050915
  Receipt Date: 20050901
  Transmission Date: 20060218
  Serious: Yes (Hospitalization)
  Sender: FDA-Public Use
  Company Number: US015932

PATIENT
  Age: 31 Year
  Sex: Male
  Weight: 158.759 kg

DRUGS (9)
  1. PROVIGIL [Suspect]
     Indication: SLEEP APNOEA SYNDROME
     Dosage: 200 MG QHS ORAL
     Route: 048
     Dates: start: 20050501, end: 20050828
  2. PROVIGIL [Suspect]
     Indication: SOMNOLENCE
     Dosage: 200 MG QHS ORAL
     Route: 048
     Dates: start: 20050501, end: 20050828
  3. DEPAKOTE [Suspect]
  4. AVINZA [Concomitant]
  5. LEXAPRO [Concomitant]
  6. TESSALON [Concomitant]
  7. IBUPROFEN [Concomitant]
  8. XANAX [Concomitant]
  9. ALBUTEROL [Concomitant]

REACTIONS (3)
  - DRUG SCREEN POSITIVE [None]
  - GRAND MAL CONVULSION [None]
  - SLEEP APNOEA SYNDROME [None]
